FAERS Safety Report 6375410-6 (Version None)
Quarter: 2009Q3

REPORT INFORMATION
  Report Type: 
  Country: None (occurrence: None)
  Receive Date: 20090924
  Receipt Date: 20090917
  Transmission Date: 20100115
  Serious: Yes (Death, Life-Threatening, Hospitalization)
  Sender: FDA-Public Use
  Company Number: JP-BAYER-200912141BYL

PATIENT
  Age: 36 Year
  Sex: Male
  Weight: 53 kg

DRUGS (6)
  1. NEXAVAR [Suspect]
     Indication: HEPATIC NEOPLASM MALIGNANT
     Dosage: TOTAL DAILY DOSE: 800 MG  UNIT DOSE: 200 MG
     Route: 048
     Dates: start: 20090611, end: 20090625
  2. NEXAVAR [Suspect]
     Route: 048
     Dates: start: 20090707, end: 20090715
  3. OXYCONTIN [Concomitant]
     Indication: CANCER PAIN
     Dosage: TOTAL DAILY DOSE: 15 MG
     Route: 048
     Dates: start: 20090529
  4. HYPEN [Concomitant]
     Indication: CANCER PAIN
     Dosage: TOTAL DAILY DOSE: 400 MG
     Route: 048
     Dates: start: 20090529
  5. URSO 250 [Concomitant]
     Indication: HEPATIC CIRRHOSIS
     Dosage: TOTAL DAILY DOSE: 300 MG
     Route: 048
  6. MAGMITT [Concomitant]
     Indication: CONSTIPATION
     Dosage: AFTER EVERY MEAL
     Route: 048
     Dates: start: 20090608

REACTIONS (6)
  - DECREASED APPETITE [None]
  - GASTRIC VARICES HAEMORRHAGE [None]
  - GASTROINTESTINAL HAEMORRHAGE [None]
  - GENERAL PHYSICAL HEALTH DETERIORATION [None]
  - NAUSEA [None]
  - VARICOSE VEIN RUPTURED [None]
